FAERS Safety Report 10032969 (Version 1)
Quarter: 2014Q1

REPORT INFORMATION
  Report Type: Spontaneous
  Country: PT (occurrence: DE)
  Receive Date: 20140324
  Receipt Date: 20140324
  Transmission Date: 20141002
  Serious: Yes (Other)
  Sender: FDA-Public Use
  Company Number: 2014SP000898

PATIENT
  Age: 29 Year
  Sex: Male

DRUGS (4)
  1. ZEBINIX (ESLICARBAZEPINE ACETATE) [Suspect]
     Indication: EPILEPSY
     Route: 048
  2. ZEBINIX (ESLICARBAZEPINE ACETATE) [Suspect]
     Indication: EPILEPSY
     Route: 048
     Dates: start: 20120913
  3. TRILEPTAL [Concomitant]
     Indication: EPILEPSY
  4. TRILEPTAL [Concomitant]

REACTIONS (3)
  - Angina pectoris [Recovered/Resolved]
  - Overdose [Recovered/Resolved]
  - Off label use [None]
